FAERS Safety Report 8476566-1 (Version None)
Quarter: 2012Q2

REPORT INFORMATION
  Report Type: 
  Country: None (occurrence: None)
  Receive Date: 20120628
  Receipt Date: 20120615
  Transmission Date: 20120825
  Serious: No
  Sender: FDA-Public Use
  Company Number: US-ASTRAZENECA-2012SE22517

PATIENT
  Age: 46 Year
  Sex: Female
  Weight: 93.9 kg

DRUGS (2)
  1. NEXIUM [Concomitant]
     Route: 048
  2. SYMBICORT [Suspect]
     Dosage: UNKNOWN FREQUENCY.
     Route: 055

REACTIONS (3)
  - ODYNOPHAGIA [None]
  - HYPERSENSITIVITY [None]
  - OROPHARYNGEAL PAIN [None]
